FAERS Safety Report 5858045-0 (Version None)
Quarter: 2008Q3

REPORT INFORMATION
  Report Type: 
  Country: None (occurrence: None)
  Receive Date: 20080826
  Receipt Date: 20080820
  Transmission Date: 20090109
  Serious: Yes (Other)
  Sender: FDA-Public Use
  Company Number: US-MERCK-0808USA04092

PATIENT

DRUGS (1)
  1. JANUVIA [Suspect]
     Indication: TYPE 2 DIABETES MELLITUS
     Route: 048
     Dates: start: 20070101, end: 20080101

REACTIONS (1)
  - RENAL FAILURE [None]
